FAERS Safety Report 25741213 (Version 3)
Quarter: 2025Q3

REPORT INFORMATION
  Report Type: Spontaneous
  Country: US (occurrence: US)
  Receive Date: 20250829
  Receipt Date: 20250917
  Transmission Date: 20251020
  Serious: Yes (Other)
  Sender: ABBVIE
  Company Number: US-ABBVIE-6430272

PATIENT
  Sex: Female
  Weight: 72 kg

DRUGS (3)
  1. RINVOQ [Suspect]
     Active Substance: UPADACITINIB
     Indication: Dermatitis atopic
     Route: 048
  2. DUPILUMAB [Suspect]
     Active Substance: DUPILUMAB
     Indication: Dermatitis atopic
     Dosage: FORM STRENGTH 300MG/2ML    DISCONTINUED 2025    300MG/2M1 AT A DOSE OF 300 MG QO IV
     Route: 058
     Dates: start: 202503
  3. DUPILUMAB [Suspect]
     Active Substance: DUPILUMAB
     Indication: Dermatitis atopic
     Dosage: FORM STRENGTH 300MG/2ML   FIRST ADMIN DATE 2025   300MG/2M1 AT A DOSE OF 300 MG QO IV
     Route: 058
     Dates: end: 202507

REACTIONS (8)
  - Dermatitis atopic [Unknown]
  - Maternal exposure during pregnancy [Unknown]
  - Diabetes insipidus [Not Recovered/Not Resolved]
  - Scratch [Not Recovered/Not Resolved]
  - Cough [Not Recovered/Not Resolved]
  - Therapeutic product effect decreased [Unknown]
  - Live birth [Unknown]
  - Drug hypersensitivity [Unknown]

NARRATIVE: CASE EVENT DATE: 20250101
